FAERS Safety Report 6868442-2 (Version None)
Quarter: 2010Q3

REPORT INFORMATION
  Report Type: 
  Country: None (occurrence: None)
  Receive Date: 20100722
  Receipt Date: 20080523
  Transmission Date: 20110219
  Serious: No
  Sender: FDA-Public Use
  Company Number: US-PFIZER INC-2008046101

PATIENT
  Sex: Female
  Weight: 61.363 kg

DRUGS (3)
  1. CHANTIX [Suspect]
     Dates: start: 20080521
  2. LIPITOR [Concomitant]
  3. PRILOSEC [Concomitant]

REACTIONS (1)
  - PRURITUS [None]
